FAERS Safety Report 20377444 (Version 5)
Quarter: 2022Q2

REPORT INFORMATION
  Report Type: Spontaneous
  Country: CA (occurrence: CA)
  Receive Date: 20220126
  Receipt Date: 20220521
  Transmission Date: 20220721
  Serious: Yes (Other)
  Sender: FDA-Public Use
  Company Number: CA-CELLTRION INC.-2021CA018244

PATIENT

DRUGS (5)
  1. INFLECTRA [Suspect]
     Active Substance: INFLIXIMAB-DYYB
     Indication: Sarcoidosis
     Dosage: 450 MG, 0,2,6 THEN EVERY 8 WEEKS
     Route: 042
     Dates: start: 20211208
  2. INFLECTRA [Suspect]
     Active Substance: INFLIXIMAB-DYYB
     Dosage: 500 MG (SUPPOSED TO RECEIVE 450 MG), 0,2,6 THEN EVERY 8 WEEKS(INCORRECT DOSE ADMINISTERED)
     Route: 042
     Dates: start: 20211218, end: 20211218
  3. METHOTREXATE [Concomitant]
     Active Substance: METHOTREXATE
     Dosage: 25 MG, WEEKLY
     Route: 058
  4. PREDNISONE [Concomitant]
     Active Substance: PREDNISONE
     Dosage: DOSES BETWEEN 20 AND 40MG DAILY
  5. PREDNISONE [Concomitant]
     Active Substance: PREDNISONE
     Dosage: 20 MG, DAILY

REACTIONS (7)
  - Cardiac sarcoidosis [Not Recovered/Not Resolved]
  - Diabetes mellitus [Unknown]
  - Off label use [Unknown]
  - Dyspnoea [Not Recovered/Not Resolved]
  - Fatigue [Not Recovered/Not Resolved]
  - Hyperhidrosis [Not Recovered/Not Resolved]
  - COVID-19 [Unknown]

NARRATIVE: CASE EVENT DATE: 20220504
